FAERS Safety Report 13059269 (Version 3)
Quarter: 2017Q1

REPORT INFORMATION
  Report Type: Spontaneous
  Country: JP (occurrence: JP)
  Receive Date: 20161223
  Receipt Date: 20170123
  Transmission Date: 20170428
  Serious: Yes (Other)
  Sender: FDA-Public Use
  Company Number: JP-B.I. PHARMACEUTICALS,INC./RIDGEFIELD-2016-NB-001475

PATIENT
  Age: 80 Year
  Sex: Male

DRUGS (1)
  1. PRAZAXA [Suspect]
     Active Substance: DABIGATRAN ETEXILATE MESYLATE
     Indication: ATRIAL FIBRILLATION
     Route: 048
     Dates: start: 2013, end: 20160421

REACTIONS (2)
  - Eosinophilic pneumonia chronic [Recovered/Resolved]
  - Atrial thrombosis [Recovered/Resolved]

NARRATIVE: CASE EVENT DATE: 20160127
